FAERS Safety Report 7488451-2 (Version None)
Quarter: 2011Q2

REPORT INFORMATION
  Report Type: 
  Country: None (occurrence: None)
  Receive Date: 20110518
  Receipt Date: 20110121
  Transmission Date: 20111010
  Serious: Yes (Hospitalization, Other)
  Sender: FDA-Public Use
  Company Number: US-BAYER-2011-008412

PATIENT
  Age: 37 Year
  Sex: Female
  Weight: 58.05 kg

DRUGS (7)
  1. ACYCLOVIR [Concomitant]
  2. YAZ [Suspect]
     Indication: PREMENSTRUAL SYNDROME
  3. CLARITIN [Concomitant]
  4. XANAX [Concomitant]
  5. YAZ [Suspect]
     Indication: CONTRACEPTION
     Dosage: 1 DF, QD
     Dates: start: 20071101, end: 20090701
  6. YAZ [Suspect]
     Indication: MOOD SWINGS
  7. IBUPROFEN [Concomitant]

REACTIONS (9)
  - CHOLELITHIASIS [None]
  - CHOLECYSTECTOMY [None]
  - DEPRESSION [None]
  - ABDOMINAL PAIN [None]
  - CHOLECYSTITIS CHRONIC [None]
  - PANCREATITIS [None]
  - CHEST DISCOMFORT [None]
  - EMOTIONAL DISTRESS [None]
  - MIGRAINE [None]
